FAERS Safety Report 6220176-3 (Version None)
Quarter: 2009Q2

REPORT INFORMATION
  Report Type: 
  Country: None (occurrence: None)
  Receive Date: 20090605
  Receipt Date: 20090525
  Transmission Date: 20091009
  Serious: No
  Sender: FDA-Public Use
  Company Number: 006601

PATIENT
  Age: 91 Year
  Sex: Male

DRUGS (4)
  1. PLETAL [Suspect]
     Indication: INTERMITTENT CLAUDICATION
     Dosage: 100 MG, DAILY DOSE, ORAL
     Route: 048
     Dates: start: 20090504, end: 20090508
  2. DIGOXIN [Concomitant]
  3. TICLOPIDINE HYDROCHLORIDE [Concomitant]
  4. CALCIUM CHANNEL BLOCKERS [Concomitant]

REACTIONS (6)
  - ASTHENIA [None]
  - CARDIAC FAILURE [None]
  - DYSPNOEA [None]
  - HYPOTENSION [None]
  - RALES [None]
  - TACHYCARDIA [None]
